FAERS Safety Report 4345577-X (Version None)
Quarter: 2004Q1

REPORT INFORMATION
  Report Type: 
  Country: None (occurrence: None)
  Receive Date: 20040325
  Receipt Date: 20040108
  Transmission Date: 20041129
  Serious: No
  Sender: FDA-Public Use
  Company Number: USA040156152

PATIENT
  Age: 83 Year
  Sex: Female
  Weight: 52 kg

DRUGS (12)
  1. FORTEO [Suspect]
     Indication: OSTEOPOROSIS
     Dates: start: 20030714
  2. VITAMIN D [Concomitant]
  3. ASPIRIN [Concomitant]
  4. CAPTOPRIL [Concomitant]
  5. DIPYRIDAMOLE [Concomitant]
  6. ACEIPHEX (RABEPRAZOLE SODIUM) [Concomitant]
  7. TUMS (CALCIUM CARBONATE) [Concomitant]
  8. CALCIUM [Concomitant]
  9. VITAMIN E [Concomitant]
  10. TYLENOL [Concomitant]
  11. OXYBUTYNIN [Concomitant]
  12. METOCLOPROMIDE [Concomitant]

REACTIONS (3)
  - HEADACHE [None]
  - PAIN [None]
  - WEIGHT DECREASED [None]
